FAERS Safety Report 6828077-4 (Version None)
Quarter: 2010Q3

REPORT INFORMATION
  Report Type: 
  Country: None (occurrence: None)
  Receive Date: 20100708
  Receipt Date: 20100708
  Transmission Date: 20110219
  Serious: Yes (Other)
  Sender: FDA-Public Use
  Company Number: None

PATIENT
  Age: 46 Year
  Sex: Female
  Weight: 47.1741 kg

DRUGS (1)
  1. SINGULAIR [Suspect]
     Indication: ASTHMA
     Dosage: 10MG/DAY 1 TABLET PER DAY PO
     Route: 048
     Dates: start: 20100701, end: 20100704

REACTIONS (2)
  - ANXIETY [None]
  - DEPRESSION [None]
